FAERS Safety Report 18397413 (Version 7)
Quarter: 2021Q3

REPORT INFORMATION
  Report Type: Report from Study
  Country: JP (occurrence: JP)
  Receive Date: 20201019
  Receipt Date: 20210916
  Transmission Date: 20211014
  Serious: Yes (Hospitalization, Other)
  Sender: FDA-Public Use
  Company Number: NVSJ2020JP009990

PATIENT
  Age: 5 Year
  Sex: Female
  Weight: 17.6 kg

DRUGS (3)
  1. ILARIS [Suspect]
     Active Substance: CANAKINUMAB
     Indication: STILL^S DISEASE
     Dosage: 72 MG, UNKNOWN
     Route: 058
     Dates: start: 20200608, end: 20200608
  2. PREDNISOLONE. [Concomitant]
     Active Substance: PREDNISOLONE
     Indication: STILL^S DISEASE
     Dosage: 4 MG
     Route: 048
     Dates: start: 20170417
  3. ILARIS [Suspect]
     Active Substance: CANAKINUMAB
     Dosage: 72 MG, UNKNOWN
     Route: 058
     Dates: start: 20200706, end: 20200706

REACTIONS (5)
  - Interleukin level increased [Recovering/Resolving]
  - Disease recurrence [Recovering/Resolving]
  - Liver disorder [Recovering/Resolving]
  - Pyrexia [Recovering/Resolving]
  - Still^s disease [Recovering/Resolving]

NARRATIVE: CASE EVENT DATE: 20200803
